FAERS Safety Report 20179356 (Version 3)
Quarter: 2022Q1

REPORT INFORMATION
  Report Type: Report from Study
  Country: DE (occurrence: DE)
  Receive Date: 20211214
  Receipt Date: 20220118
  Transmission Date: 20220424
  Serious: Yes (Hospitalization, Other)
  Sender: FDA-Public Use
  Company Number: DE-ABBVIE-21K-062-4193313-00

PATIENT
  Age: 69 Year
  Sex: Male

DRUGS (41)
  1. CARBIDOPA\LEVODOPA [Suspect]
     Active Substance: CARBIDOPA\LEVODOPA
     Indication: Parkinson^s disease
     Dosage: MD 5 ML  CRD 3.3 ML/H CRN 2 ML/H ED 2 ML
     Route: 050
     Dates: start: 20171211, end: 2021
  2. CARBIDOPA\LEVODOPA [Suspect]
     Active Substance: CARBIDOPA\LEVODOPA
     Dosage: MD 5 ML  CRD 3.6 ML/H CRN 2 ML/H ED 2 ML
     Route: 050
     Dates: start: 2021
  3. AMLODIPINE BESYLATE [Concomitant]
     Active Substance: AMLODIPINE BESYLATE
     Indication: Product used for unknown indication
     Route: 048
  4. AMLODIPINE BESYLATE [Concomitant]
     Active Substance: AMLODIPINE BESYLATE
     Route: 048
  5. VITAMIN B6 [Concomitant]
     Active Substance: PYRIDOXINE HYDROCHLORIDE
     Indication: Product used for unknown indication
     Route: 048
  6. LOSARTAN [Concomitant]
     Active Substance: LOSARTAN
     Indication: Product used for unknown indication
     Route: 048
  7. LOSARTAN [Concomitant]
     Active Substance: LOSARTAN
     Route: 048
  8. ASPIRIN [Concomitant]
     Active Substance: ASPIRIN
     Indication: Product used for unknown indication
     Route: 048
     Dates: end: 20211005
  9. HYDROCHLOROTHIAZIDE [Concomitant]
     Active Substance: HYDROCHLOROTHIAZIDE
     Indication: Product used for unknown indication
     Route: 048
  10. METOPROLOL [Concomitant]
     Active Substance: METOPROLOL
     Indication: Product used for unknown indication
  11. PRAVASTATIN [Concomitant]
     Active Substance: PRAVASTATIN
     Indication: Product used for unknown indication
     Route: 048
  12. ONGENTYS [Concomitant]
     Active Substance: OPICAPONE
     Indication: Product used for unknown indication
     Route: 048
  13. LEVODOPA [Concomitant]
     Active Substance: LEVODOPA
     Indication: Product used for unknown indication
     Dosage: 200/50 RETARD,SANDOZ RETARD
  14. MUCOFALK [Concomitant]
     Indication: Product used for unknown indication
     Dosage: SACHET
  15. CLOZAPINE [Concomitant]
     Active Substance: CLOZAPINE
     Indication: Product used for unknown indication
     Route: 048
  16. CLOZAPINE [Concomitant]
     Active Substance: CLOZAPINE
     Route: 048
  17. CLOZAPINE [Concomitant]
     Active Substance: CLOZAPINE
     Route: 048
  18. VITAMIN B12 [Concomitant]
     Active Substance: CYANOCOBALAMIN
     Indication: Product used for unknown indication
     Route: 058
  19. RIVASTIGMINE [Concomitant]
     Active Substance: RIVASTIGMINE
     Indication: Product used for unknown indication
     Dosage: TRANSDERMAL PATCH
     Route: 062
  20. RIVASTIGMINE [Concomitant]
     Active Substance: RIVASTIGMINE
     Dosage: TRANSDERMAL PATCH
     Route: 062
  21. FOLIC ACID [Concomitant]
     Active Substance: FOLIC ACID
     Indication: Product used for unknown indication
     Route: 048
  22. NEXIUM [Concomitant]
     Active Substance: ESOMEPRAZOLE MAGNESIUM
     Indication: Product used for unknown indication
  23. DELIX [Concomitant]
     Indication: Product used for unknown indication
  24. FUROSEMIDE [Concomitant]
     Active Substance: FUROSEMIDE
     Indication: Product used for unknown indication
  25. PYRIDOXINE [Concomitant]
     Active Substance: PYRIDOXINE
     Indication: Product used for unknown indication
  26. POTASSIUM CHLORIDE [Concomitant]
     Active Substance: POTASSIUM CHLORIDE
     Indication: Product used for unknown indication
  27. HYDROCHLOROTHIAZIDE\LOSARTAN POTASSIUM [Concomitant]
     Active Substance: HYDROCHLOROTHIAZIDE\LOSARTAN POTASSIUM
     Indication: Product used for unknown indication
     Dosage: 50/12.5MG
     Route: 048
  28. HYDROCHLOROTHIAZIDE\LOSARTAN POTASSIUM [Concomitant]
     Active Substance: HYDROCHLOROTHIAZIDE\LOSARTAN POTASSIUM
     Dosage: 50/12.5MG
     Route: 048
  29. METOPROLOL [Concomitant]
     Active Substance: METOPROLOL
     Indication: Product used for unknown indication
     Route: 048
  30. METOPROLOL [Concomitant]
     Active Substance: METOPROLOL
     Route: 048
  31. METOPROLOL [Concomitant]
     Active Substance: METOPROLOL
     Route: 048
  32. METOPROLOL [Concomitant]
     Active Substance: METOPROLOL
     Route: 048
  33. POLYETHYLENE GLYCOLS [Concomitant]
     Active Substance: POLYETHYLENE GLYCOLS
     Indication: Product used for unknown indication
     Route: 048
  34. POLYETHYLENE GLYCOLS [Concomitant]
     Active Substance: POLYETHYLENE GLYCOLS
     Dosage: SACHET
     Route: 048
  35. INNOHEP [Concomitant]
     Active Substance: TINZAPARIN SODIUM
     Indication: Product used for unknown indication
     Route: 058
  36. LEVODOPA CARBIDOPA CELLOFARM [Concomitant]
     Indication: Product used for unknown indication
     Dosage: 100/50MG
     Route: 048
  37. MOVICOL [Concomitant]
     Active Substance: POLYETHYLENE GLYCOL 3350\POTASSIUM CHLORIDE\SODIUM BICARBONATE\SODIUM CHLORIDE
     Indication: Product used for unknown indication
     Dosage: SACHET
  38. METAMIZOLE [Concomitant]
     Active Substance: METAMIZOLE
     Indication: Product used for unknown indication
     Route: 048
  39. PANTOPRAZOLE SODIUM [Concomitant]
     Active Substance: PANTOPRAZOLE SODIUM
     Indication: Product used for unknown indication
     Route: 048
  40. SALOFALK [Concomitant]
     Indication: Product used for unknown indication
     Route: 048
  41. OMEPRAZOLE [Concomitant]
     Active Substance: OMEPRAZOLE
     Indication: Product used for unknown indication
     Route: 048

REACTIONS (45)
  - Lacunar stroke [Unknown]
  - Malignant gastric ulcer [Not Recovered/Not Resolved]
  - Cerebral amyloid angiopathy [Unknown]
  - Adenocarcinoma gastric [Unknown]
  - Pulmonary mass [Unknown]
  - Gastrectomy [Unknown]
  - Haemorrhoid operation [Unknown]
  - C-reactive protein increased [Unknown]
  - Hypochromic anaemia [Unknown]
  - Benign prostatic hyperplasia [Unknown]
  - Hypokalaemia [Unknown]
  - Tobacco abuse [Unknown]
  - Intervertebral disc degeneration [Unknown]
  - Dermatitis contact [Unknown]
  - Stomatitis [Unknown]
  - Arteriosclerosis coronary artery [Unknown]
  - Emphysema [Unknown]
  - Vitamin B12 deficiency [Unknown]
  - Anal haemorrhage [Unknown]
  - Haemorrhoid operation [Unknown]
  - Cerebral microangiopathy [Unknown]
  - Conjunctivitis [Unknown]
  - Cubital tunnel syndrome [Unknown]
  - Haematocrit decreased [Unknown]
  - Speech disorder [Unknown]
  - Haemoglobin decreased [Unknown]
  - Mean cell haemoglobin decreased [Unknown]
  - Red blood cell count decreased [Unknown]
  - Device dislocation [Unknown]
  - Anaemia [Unknown]
  - Iron deficiency anaemia [Unknown]
  - Weight decreased [Unknown]
  - Device connection issue [Unknown]
  - Dementia [Unknown]
  - Diarrhoea [Unknown]
  - Stoma site infection [Unknown]
  - Stoma site infection [Unknown]
  - On and off phenomenon [Unknown]
  - Stoma site hypergranulation [Unknown]
  - Stoma site infection [Unknown]
  - Stoma site extravasation [Unknown]
  - Stoma site infection [Unknown]
  - Stoma site infection [Unknown]
  - Stoma site haemorrhage [Unknown]
  - Stoma site infection [Unknown]

NARRATIVE: CASE EVENT DATE: 20171225
